FAERS Safety Report 20898115 (Version 2)
Quarter: 2022Q2

REPORT INFORMATION
  Report Type: Spontaneous
  Country: CZ (occurrence: CZ)
  Receive Date: 20220531
  Receipt Date: 20220604
  Transmission Date: 20220721
  Serious: Yes (Other)
  Sender: FDA-Public Use
  Company Number: CZ-CELLTRION INC.-2022CZ007996

PATIENT

DRUGS (34)
  1. RITUXIMAB [Suspect]
     Active Substance: RITUXIMAB
     Indication: Diffuse large B-cell lymphoma stage IV
     Dosage: UNK, CYCLIC, (IN THE FIRST LINE, 3 CYCLES OF R-CHOP REGIMEN)
     Route: 065
  2. RITUXIMAB [Suspect]
     Active Substance: RITUXIMAB
     Dosage: UNK, CYCLIC, (IN THE SECOND LINE, 3 CYCLES OF R-CHOEP REGIMEN)
     Route: 065
  3. RITUXIMAB [Suspect]
     Active Substance: RITUXIMAB
     Dosage: UNK, CYCLIC, (IN THE THIRD LINE, 2 CYCLES OF R-DHAP REGIMEN)
     Route: 065
     Dates: start: 202104
  4. RITUXIMAB [Suspect]
     Active Substance: RITUXIMAB
     Dosage: 3 CYCLES (FIRST LINE TREATMENT) R-CHOP THERAPY
     Route: 065
  5. RITUXIMAB [Suspect]
     Active Substance: RITUXIMAB
     Dosage: 3 CYCLES (SECOND LINE TREATMENT) R-CHOEP THERAPY
     Route: 065
  6. DOXORUBICIN [Suspect]
     Active Substance: DOXORUBICIN
     Indication: Diffuse large B-cell lymphoma stage IV
     Dosage: UNK, CYCLIC, (IN THE FIRST LINE, 2 CYCLES OF CHOP REGIMEN)
     Route: 065
  7. DOXORUBICIN [Suspect]
     Active Substance: DOXORUBICIN
     Dosage: UNK, CYCLIC, (IN THE FIRST LINE, 3 CYCLES OF R-CHOP REGIMEN)
     Route: 065
  8. DOXORUBICIN [Suspect]
     Active Substance: DOXORUBICIN
     Dosage: UNK, CYCLIC (IN THE SECOND LINE, 3 CYCLES OF R-CHOEP REGIMEN)
     Route: 065
  9. DOXORUBICIN [Suspect]
     Active Substance: DOXORUBICIN
     Dosage: 3 CYCLES (SECOND LINE TREATMENT) R-CHOEP THERAPY
     Route: 065
  10. DOXORUBICIN [Suspect]
     Active Substance: DOXORUBICIN
     Dosage: 3 CYCLES (FIRST LINE TREATMENT) R-CHOP THERAPY
     Route: 065
  11. DOXORUBICIN [Suspect]
     Active Substance: DOXORUBICIN
     Dosage: 2 CYCLES (FIRST LINE TREATMENT) CHOP THERAPY
     Route: 065
  12. CYCLOPHOSPHAMIDE [Suspect]
     Active Substance: CYCLOPHOSPHAMIDE
     Indication: Diffuse large B-cell lymphoma stage IV
     Dosage: UNK, CYCLIC, (IN THE FIRST LINE, 3 CYCLES OF R-CHOP REGIMEN)
     Route: 065
  13. CYCLOPHOSPHAMIDE [Suspect]
     Active Substance: CYCLOPHOSPHAMIDE
     Dosage: UNK, CYCLIC, (IN THE SECOND LINE, 3 CYCLES OF R-CHOEP REGIMEN)
     Route: 065
  14. CYCLOPHOSPHAMIDE [Suspect]
     Active Substance: CYCLOPHOSPHAMIDE
     Dosage: UNK, CYCLIC, (IN THE FIRST LINE, 2 CYCLES OF CHOP REGIMEN)
     Route: 065
  15. CYCLOPHOSPHAMIDE [Suspect]
     Active Substance: CYCLOPHOSPHAMIDE
     Dosage: 2 CYCLES (FIRST LINE TREATMENT) CHOP THERAPY
     Route: 065
  16. CYCLOPHOSPHAMIDE [Suspect]
     Active Substance: CYCLOPHOSPHAMIDE
     Dosage: 3 CYCLES (FIRST LINE TREATMENT)3 CYCLES (FIRST LINE TREATMENT) R-CHOP THERAPY
     Route: 065
  17. CYCLOPHOSPHAMIDE [Suspect]
     Active Substance: CYCLOPHOSPHAMIDE
     Dosage: 3 CYCLES (SECOND LINE TREATMENT) R-CHOEP THERAPY
     Route: 065
  18. VINCRISTINE [Suspect]
     Active Substance: VINCRISTINE
     Indication: Diffuse large B-cell lymphoma stage IV
     Dosage: UNK, CYCLIC, (IN THE SECOND LINE, 3 CYCLES OF R-CHOEP REGIMEN)
     Route: 065
  19. VINCRISTINE [Suspect]
     Active Substance: VINCRISTINE
     Dosage: UNK, CYCLIC, (IN THE FIRST LINE, 2 CYCLES OF CHOP REGIMEN)
     Route: 065
  20. VINCRISTINE [Suspect]
     Active Substance: VINCRISTINE
     Dosage: UNK, CYCLIC, (IN THE FIRST LINE, 3 CYCLES OF R-CHOP REGIMEN)
     Route: 065
  21. VINCRISTINE [Suspect]
     Active Substance: VINCRISTINE
     Dosage: 2 CYCLES (FIRST LINE TREATMENT) CHOP THERAPY
     Route: 065
  22. VINCRISTINE [Suspect]
     Active Substance: VINCRISTINE
     Dosage: 3 CYCLES (FIRST LINE TREATMENT) R-CHOP THERAPY
     Route: 065
  23. VINCRISTINE [Suspect]
     Active Substance: VINCRISTINE
     Dosage: 3 CYCLES (SECOND LINE TREATMENT) R-CHOEP THERAPY
     Route: 065
  24. CYTARABINE [Suspect]
     Active Substance: CYTARABINE
     Indication: Diffuse large B-cell lymphoma stage IV
     Dosage: UNK, CYCLIC, (IN THE THIRD LINE, 2 CYCLES OF R-DHAP REGIMEN)
     Route: 065
     Dates: start: 202104
  25. CISPLATIN [Suspect]
     Active Substance: CISPLATIN
     Indication: Diffuse large B-cell lymphoma stage IV
     Dosage: UNK, CYCLIC, (IN THE THIRD LINE, 2 CYCLES OF R-DHAP REGIMEN)
     Route: 065
     Dates: start: 202104
  26. PREDNISONE [Suspect]
     Active Substance: PREDNISONE
     Indication: Diffuse large B-cell lymphoma stage IV
     Dosage: UNK, CYCLIC, (IN THE FIRST LINE, 2 CYCLES OF CHOP REGIMEN)
     Route: 065
  27. PREDNISONE [Suspect]
     Active Substance: PREDNISONE
     Dosage: UNK, CYCLIC, (IN THE FIRST LINE, 3 CYCLES OF R-CHOP REGIMEN)
     Route: 065
  28. PREDNISONE [Suspect]
     Active Substance: PREDNISONE
     Dosage: UNK, CYCLIC, (IN THE SECOND LINE, 3 CYCLES OF R-CHOEP REGIMEN)
     Route: 065
  29. PREDNISONE [Suspect]
     Active Substance: PREDNISONE
     Dosage: 3 CYCLES (FIRST LINE TREATMENT) R-CHOP THERAPY
     Route: 065
  30. PREDNISONE [Suspect]
     Active Substance: PREDNISONE
     Dosage: 2 CYCLES (FIRST LINE TREATMENT) CHOP THERAPY
     Route: 065
  31. PREDNISONE [Suspect]
     Active Substance: PREDNISONE
     Dosage: 3 CYCLES (SECOND LINE TREATMENT) R-CHOEP THERAPY
     Route: 065
  32. DEXAMETHASONE [Suspect]
     Active Substance: DEXAMETHASONE
     Indication: Diffuse large B-cell lymphoma stage IV
     Dosage: UNK, CYCLIC, (IN THE THIRD LINE 2 CYCLES OF R-DHAP REGIMEN)
     Route: 065
     Dates: start: 202104
  33. ETOPOSIDE [Suspect]
     Active Substance: ETOPOSIDE
     Indication: Diffuse large B-cell lymphoma stage IV
     Dosage: UNK, CYCLIC, (IN THE SECOND LINE, 3 CYCLES OF THE R-CHOEP REGIMEN)
     Route: 065
  34. ETOPOSIDE [Suspect]
     Active Substance: ETOPOSIDE
     Dosage: 3 CYCLES (SECOND LINE TREATMENT) R-CHOEP THERAPY
     Route: 065

REACTIONS (4)
  - Malignant neoplasm progression [Unknown]
  - Diffuse large B-cell lymphoma stage IV [Unknown]
  - Therapy partial responder [Unknown]
  - Product use in unapproved indication [Unknown]
